FAERS Safety Report 25893059 (Version 1)
Quarter: 2025Q4

REPORT INFORMATION
  Report Type: Report from Study
  Country: US (occurrence: US)
  Receive Date: 20251008
  Receipt Date: 20251008
  Transmission Date: 20260117
  Serious: Yes (Other)
  Sender: ABBVIE
  Company Number: US-ABBVIE-5837492

PATIENT
  Age: 67 Year
  Sex: Female

DRUGS (8)
  1. SYNTHROID [Suspect]
     Active Substance: LEVOTHYROXINE SODIUM
     Indication: Hypothyroidism
     Dosage: 25MCG/ 1 TAB DAILY
     Route: 048
     Dates: start: 2025
  2. SYNTHROID [Suspect]
     Active Substance: LEVOTHYROXINE SODIUM
     Indication: Hypothyroidism
     Dosage: 25MCG/1 TABLET DAILY
     Route: 048
     Dates: start: 20240706
  3. VITAMIN D3 [Concomitant]
     Active Substance: CHOLECALCIFEROL
     Indication: Product used for unknown indication
     Dosage: CAPSULE 5000 UNIT
  4. HERBALS\TURMERIC [Concomitant]
     Active Substance: HERBALS\TURMERIC
     Indication: Product used for unknown indication
  5. L Lysine [Concomitant]
     Indication: Product used for unknown indication
  6. Liquid calcium with magnesium [Concomitant]
     Indication: Product used for unknown indication
  7. ASPIRIN [Concomitant]
     Active Substance: ASPIRIN
     Indication: Product used for unknown indication
  8. LEVOMEFOLIC ACID [Concomitant]
     Active Substance: LEVOMEFOLIC ACID
     Indication: Product used for unknown indication

REACTIONS (6)
  - Chronic kidney disease [Unknown]
  - Headache [Unknown]
  - Palpitations [Not Recovered/Not Resolved]
  - Cardiac flutter [Not Recovered/Not Resolved]
  - Expired product administered [Unknown]
  - Glomerular filtration rate increased [Unknown]

NARRATIVE: CASE EVENT DATE: 20240706
